FAERS Safety Report 18685494 (Version 1)
Quarter: 2020Q4

REPORT INFORMATION
  Report Type: Other
  Country: US (occurrence: US)
  Receive Date: 20201230
  Receipt Date: 20201230
  Transmission Date: 20210114
  Serious: No
  Sender: FDA-Public Use
  Company Number: US-AMAG PHARMACEUTICALS, INC.-AMAG202003611

PATIENT
  Age: 31 Year
  Sex: Female
  Weight: 87.17 kg

DRUGS (1)
  1. MAKENA [Suspect]
     Active Substance: HYDROXYPROGESTERONE CAPROATE
     Indication: PREMATURE DELIVERY
     Route: 058
     Dates: start: 20200801, end: 20201015

REACTIONS (3)
  - Dizziness [Unknown]
  - Disturbance in attention [Unknown]
  - Uterine contractions during pregnancy [Unknown]

NARRATIVE: CASE EVENT DATE: 20200802
